FAERS Safety Report 9203796 (Version 1)
Quarter: 2013Q2

REPORT INFORMATION
  Report Type: Report from Study
  Country: US (occurrence: US)
  Receive Date: 20130402
  Receipt Date: 20130402
  Transmission Date: 20140414
  Serious: Yes (Other)
  Sender: FDA-Public Use
  Company Number: US-ASTELLAS-2013US003529

PATIENT
  Sex: 0

DRUGS (5)
  1. ERLOTINIB TABLET [Suspect]
     Indication: COLORECTAL CANCER METASTATIC
     Dosage: 100 MG, UID/QD, DAY 3-8, DAY 16-21
     Route: 065
  2. FOLINIC ACID [Suspect]
     Indication: COLORECTAL CANCER METASTATIC
     Dosage: DAY 1,2; DAY 14, 15
     Route: 065
  3. FLUOROURACIL [Suspect]
     Indication: COLORECTAL CANCER METASTATIC
     Dosage: DAY 1,2; DAY 14, 15
     Route: 065
  4. OXALIPLATIN [Suspect]
     Indication: COLORECTAL CANCER METASTATIC
     Dosage: DAY 1,2; DAY 14, 15
     Route: 065
  5. IRINOTECAN [Suspect]
     Indication: COLORECTAL CANCER METASTATIC
     Dosage: DAY 1,2; DAY 14, 15
     Route: 065

REACTIONS (2)
  - Off label use [Unknown]
  - Hyponatraemia [Unknown]
